FAERS Safety Report 21875769 (Version 2)
Quarter: 2023Q1

REPORT INFORMATION
  Report Type: Spontaneous
  Country: US (occurrence: US)
  Receive Date: 20230118
  Receipt Date: 20230303
  Transmission Date: 20230418
  Serious: Yes (Other)
  Sender: FDA-Public Use
  Company Number: US-NOVOPROD-1011195

PATIENT
  Age: 45 Year
  Sex: Female

DRUGS (1)
  1. TRESIBA [Suspect]
     Active Substance: INSULIN DEGLUDEC
     Indication: Type 2 diabetes mellitus
     Dosage: 60 IU, QD
     Route: 058
     Dates: start: 20190315

REACTIONS (3)
  - Blood glucose increased [Unknown]
  - Device breakage [Unknown]
  - Incorrect dose administered by device [Unknown]

NARRATIVE: CASE EVENT DATE: 20230101
